FAERS Safety Report 16857649 (Version 1)
Quarter: 2019Q3

REPORT INFORMATION
  Report Type: Report from Study
  Country: US (occurrence: US)
  Receive Date: 20190926
  Receipt Date: 20190926
  Transmission Date: 20191005
  Serious: Yes (Hospitalization)
  Sender: FDA-Public Use
  Company Number: US-PFIZER INC-2019401689

PATIENT
  Age: 16 Year
  Sex: Female
  Weight: 94.3 kg

DRUGS (9)
  1. VINCRISTINE SULFATE. [Suspect]
     Active Substance: VINCRISTINE SULFATE
     Indication: B PRECURSOR TYPE ACUTE LEUKAEMIA
     Dosage: 2 MG, ONCE
     Route: 042
     Dates: start: 20170715
  2. METHOTREXATE SODIUM. [Suspect]
     Active Substance: METHOTREXATE SODIUM
     Indication: B PRECURSOR TYPE ACUTE LEUKAEMIA
     Dosage: 40 MG, WEEKLY
     Route: 048
     Dates: start: 20180425, end: 20180724
  3. INCB018424 [Suspect]
     Active Substance: RUXOLITINIB
     Dosage: 100 MG, BID, 14 DAYS ON/OFF PER CYCLE
     Route: 048
     Dates: start: 20180928
  4. MERCAPTOPURINE. [Suspect]
     Active Substance: MERCAPTOPURINE
     Dosage: 150 MG X6 AND 125 MG X1 WEEKLY
     Route: 048
     Dates: start: 20170620, end: 20180802
  5. INCB018424 [Suspect]
     Active Substance: RUXOLITINIB
     Indication: B PRECURSOR TYPE ACUTE LEUKAEMIA
     Dosage: 50 MG/M2 14 DAYS ON/OFF PER CYCLE
     Route: 048
     Dates: start: 20170620
  6. MERCAPTOPURINE. [Suspect]
     Active Substance: MERCAPTOPURINE
     Dosage: RESTARTED AT 50% DOSING
     Dates: start: 20180827
  7. METHOTREXATE SODIUM. [Suspect]
     Active Substance: METHOTREXATE SODIUM
     Dosage: 40 MG, WEEKLY
     Route: 048
     Dates: start: 20180827
  8. METHOTREXATE SODIUM. [Suspect]
     Active Substance: METHOTREXATE SODIUM
     Indication: B PRECURSOR TYPE ACUTE LEUKAEMIA
     Dosage: 15 MG, ONCE
     Route: 037
     Dates: start: 20170620
  9. PREDNISONE. [Suspect]
     Active Substance: PREDNISONE
     Indication: B PRECURSOR TYPE ACUTE LEUKAEMIA
     Dosage: 40 MG, BID (10 DOSES)
     Route: 048
     Dates: start: 20180424

REACTIONS (4)
  - Blood bilirubin increased [Recovered/Resolved]
  - Gamma-glutamyltransferase increased [Recovered/Resolved]
  - Febrile neutropenia [Recovered/Resolved]
  - Sepsis [Recovered/Resolved]

NARRATIVE: CASE EVENT DATE: 20180802
